FAERS Safety Report 10163229 (Version 1)
Quarter: 2014Q2

REPORT INFORMATION
  Report Type: Report from Study
  Country: CA (occurrence: CA)
  Receive Date: 20140509
  Receipt Date: 20140509
  Transmission Date: 20141212
  Serious: Yes (Other)
  Sender: FDA-Public Use
  Company Number: CA-BRISTOL-MYERS SQUIBB COMPANY-20704615

PATIENT
  Age: 56 Year
  Sex: Female

DRUGS (8)
  1. ORENCIA [Suspect]
     Indication: RHEUMATOID ARTHRITIS
     Dates: start: 20130611, end: 20140507
  2. METHOTREXATE [Concomitant]
  3. PANTOPRAZOLE [Concomitant]
  4. PROVERA [Concomitant]
  5. ESTROGEN [Concomitant]
  6. FOLIC ACID [Concomitant]
  7. VOLTAREN [Concomitant]
     Dosage: CREAM
  8. MOTRIN [Concomitant]
     Indication: PAIN

REACTIONS (2)
  - Arthropathy [Unknown]
  - Epistaxis [Not Recovered/Not Resolved]
